FAERS Safety Report 7198318-5 (Version None)
Quarter: 2010Q4

REPORT INFORMATION
  Report Type: 
  Country: None (occurrence: None)
  Receive Date: 20101227
  Receipt Date: 20101214
  Transmission Date: 20110411
  Serious: Yes (Hospitalization, Other)
  Sender: FDA-Public Use
  Company Number: PHHY2010BR84999

PATIENT
  Age: 45 Year
  Sex: Female
  Weight: 82 kg

DRUGS (6)
  1. SANDOSTATIN LAR [Suspect]
     Indication: NEUROENDOCRINE TUMOUR
     Dosage: 20MG 1FA , 1 APPLICATION A MONTH
     Route: 030
     Dates: start: 20040101
  2. SANDOSTATIN LAR [Suspect]
     Dosage: 30MG 1FA , 1 APPLICATION A MONTH
     Route: 030
     Dates: start: 20080101
  3. OMEPRAZOLE [Concomitant]
     Dosage: 60 MG, QD
     Route: 048
  4. EUTIROX [Concomitant]
     Indication: HYPOTHYROIDISM
     Dosage: 350 MG, UNK
     Route: 048
  5. MOTILIUM [Concomitant]
     Indication: HYPOTHYROIDISM
     Dosage: 10 MG, 1 HOUR BEFORE THE MEALS
     Route: 048
     Dates: start: 20040101
  6. VITAMIN B-12 [Concomitant]
     Dosage: 1 DF, EVERY 15 DAYS
     Route: 030

REACTIONS (6)
  - DIARRHOEA [None]
  - DISEASE RECURRENCE [None]
  - GASTROINTESTINAL HAEMORRHAGE [None]
  - HAEMATOCHEZIA [None]
  - PAIN IN EXTREMITY [None]
  - TUMOUR EXCISION [None]
